FAERS Safety Report 8184316-1 (Version None)
Quarter: 2012Q1

REPORT INFORMATION
  Report Type: 
  Country: None (occurrence: None)
  Receive Date: 20120305
  Receipt Date: 20120301
  Transmission Date: 20120608
  Serious: Yes (Other)
  Sender: FDA-Public Use
  Company Number: BR-ABBOTT-12P-020-0910776-00

PATIENT
  Weight: 67 kg

DRUGS (5)
  1. HUMIRA [Suspect]
     Indication: CROHN'S DISEASE
     Dosage: INDUCTION DOSE
     Route: 058
     Dates: start: 20101101
  2. HUMIRA [Suspect]
     Route: 058
  3. HUMIRA [Suspect]
     Route: 058
  4. HUMIRA [Suspect]
     Dosage: INDUCTION DOSE
     Route: 058
  5. CORTICOID [Suspect]
     Indication: PRODUCT USED FOR UNKNOWN INDICATION

REACTIONS (12)
  - HAIR COLOUR CHANGES [None]
  - MATERNAL EXPOSURE DURING PREGNANCY [None]
  - BENIGN HYDATIDIFORM MOLE [None]
  - MENSTRUAL DISORDER [None]
  - ABORTION [None]
  - MESENTERIC VEIN THROMBOSIS [None]
  - ABDOMINAL PAIN [None]
  - FEELING HOT [None]
  - WEIGHT INCREASED [None]
  - ERYTHEMA [None]
  - LISTLESS [None]
  - ALOPECIA [None]
